FAERS Safety Report 10945400 (Version 1)
Quarter: 2015Q1

REPORT INFORMATION
  Report Type: Spontaneous
  Country: US (occurrence: None)
  Receive Date: 20150319
  Receipt Date: 20150319
  Transmission Date: 20150721
  Serious: Yes (Other)
  Sender: FDA-Public Use
  Company Number: 201503068

PATIENT
  Age: 59 Year
  Sex: Female
  Weight: 54.89 kg

DRUGS (14)
  1. ALENDRONATE (ALENDRONATE SODIUM) [Concomitant]
     Active Substance: ALENDRONATE SODIUM
  2. SINGULAIR [Concomitant]
     Active Substance: MONTELUKAST SODIUM
  3. FLONASE [Concomitant]
     Active Substance: FLUTICASONE PROPIONATE
  4. ZYRTEC [Concomitant]
     Active Substance: CETIRIZINE HYDROCHLORIDE
  5. ZOVIRAX [Concomitant]
     Active Substance: ACYCLOVIR
  6. PULMICORT TURBUHALER [Concomitant]
     Active Substance: BUDESONIDE
  7. XIAFLEX [Suspect]
     Active Substance: COLLAGENASE CLOSTRIDIUM HISTOLYTICUM
     Indication: DUPUYTREN^S CONTRACTURE
     Dosage: 1 IN 1 D, INTRALESIONAL
     Dates: start: 20150223, end: 20150223
  8. MUCINEX (GUAIFENESIN) [Concomitant]
  9. FORADIL (FORMOTEROL FUMARATE) [Concomitant]
  10. PRILOSEC (OMEPRAZOLE) [Concomitant]
     Active Substance: OMEPRAZOLE MAGNESIUM
  11. LOSARTAN [Concomitant]
     Active Substance: LOSARTAN
  12. THEOPHYLLINE [Concomitant]
     Active Substance: THEOPHYLLINE ANHYDROUS
  13. FLEXERIL [Concomitant]
     Active Substance: CYCLOBENZAPRINE HYDROCHLORIDE
  14. CELEBREX [Concomitant]
     Active Substance: CELECOXIB

REACTIONS (6)
  - Joint range of motion decreased [None]
  - Hypersensitivity [None]
  - Diarrhoea [None]
  - Abscess [None]
  - Confusional state [None]
  - Condition aggravated [None]

NARRATIVE: CASE EVENT DATE: 20150225
